FAERS Safety Report 7996981-X (Version None)
Quarter: 2011Q4

REPORT INFORMATION
  Report Type: 
  Country: None (occurrence: None)
  Receive Date: 20111216
  Receipt Date: 20111206
  Transmission Date: 20120403
  Serious: Yes (Hospitalization)
  Sender: FDA-Public Use
  Company Number: 1000026192

PATIENT
  Age: 81 Year
  Sex: Female

DRUGS (3)
  1. BIFRIL (ZOFENOPRIL CALCIUM) [Suspect]
     Indication: HYPERTENSION
     Dosage: ORAL
     Route: 048
     Dates: start: 20101203, end: 20111203
  2. CACIT VITAMINA D3 (CALCIUM CARBONATE, CHOLECALCIFEROL) (CALCIUM CARBON [Concomitant]
  3. NEBIVOLOL HCL [Suspect]
     Indication: HYPERTENSION
     Dosage: 5 MG (15 MG, 1 IN 1 D),ORAL
     Route: 048
     Dates: start: 20081203

REACTIONS (2)
  - PRESYNCOPE [None]
  - HYPOTENSION [None]
